FAERS Safety Report 21884335 (Version 2)
Quarter: 2023Q1

REPORT INFORMATION
  Report Type: Spontaneous
  Country: US (occurrence: US)
  Receive Date: 20230119
  Receipt Date: 20230123
  Transmission Date: 20230418
  Serious: No
  Sender: FDA-Public Use
  Company Number: US-BAYER-2023P004179

PATIENT
  Sex: Female

DRUGS (1)
  1. YAZ [Suspect]
     Active Substance: DROSPIRENONE\ETHINYL ESTRADIOL
     Dosage: UNK
     Route: 048

REACTIONS (9)
  - Hypoaesthesia [None]
  - Dysarthria [None]
  - Balance disorder [None]
  - Visual impairment [None]
  - Nausea [None]
  - Fatigue [None]
  - Vision blurred [None]
  - Asthenia [None]
  - Mood altered [None]
